FAERS Safety Report 5690379-5 (Version None)
Quarter: 2008Q1

REPORT INFORMATION
  Report Type: 
  Country: None (occurrence: None)
  Receive Date: 20080331
  Receipt Date: 20080331
  Transmission Date: 20080703
  Serious: Yes (Life-Threatening, Other)
  Sender: FDA-Public Use
  Company Number: None

PATIENT
  Age: 4 Year
  Sex: Male
  Weight: 20.4119 kg

DRUGS (1)
  1. SINGULAIR [Suspect]
     Indication: ASTHMA
     Dosage: 1 PER DAY PO
     Route: 048
     Dates: start: 20070228, end: 20080325

REACTIONS (7)
  - ABNORMAL BEHAVIOUR [None]
  - ANXIETY [None]
  - CHOKING [None]
  - COUGH [None]
  - HEARING IMPAIRED [None]
  - IRRITABILITY [None]
  - NASAL CONGESTION [None]
